FAERS Safety Report 4476774-0 (Version None)
Quarter: 2004Q4

REPORT INFORMATION
  Report Type: 
  Country: None (occurrence: None)
  Receive Date: 20041013
  Receipt Date: 20040927
  Transmission Date: 20050328
  Serious: Yes (Other)
  Sender: FDA-Public Use
  Company Number: US_030695404

PATIENT
  Age: 60 Year
  Sex: Male
  Weight: 82 kg

DRUGS (2)
  1. HUMALOG [Suspect]
     Indication: DIABETES MELLITUS
     Dosage: 15 U/3 DAY
     Dates: start: 20010101
  2. LANTUS [Concomitant]

REACTIONS (11)
  - BLOOD GLUCOSE DECREASED [None]
  - DIFFICULTY IN WALKING [None]
  - DIPLOPIA [None]
  - DIZZINESS [None]
  - FALL [None]
  - HYPERHIDROSIS [None]
  - HYPOAESTHESIA ORAL [None]
  - LOSS OF CONSCIOUSNESS [None]
  - MEDICATION ERROR [None]
  - PHARMACEUTICAL PRODUCT COMPLAINT [None]
  - ROAD TRAFFIC ACCIDENT [None]
